FAERS Safety Report 8962109 (Version 1)
Quarter: 2012Q4

REPORT INFORMATION
  Report Type: 
  Country: US (occurrence: US)
  Receive Date: 20121212
  Receipt Date: 20121212
  Transmission Date: 20130627
  Serious: Yes (Other)
  Sender: FDA-Public Use
  Company Number: US-PFIZER INC-2012307896

PATIENT
  Sex: Female

DRUGS (2)
  1. DETROL LA [Suspect]
     Dosage: UNK
  2. DETROL LA [Suspect]
     Dosage: 4 mg, UNK

REACTIONS (2)
  - Cystitis [Unknown]
  - Drug ineffective [Unknown]
